FAERS Safety Report 13153275 (Version 1)
Quarter: 2017Q1

REPORT INFORMATION
  Report Type: Spontaneous
  Country: BR (occurrence: BR)
  Receive Date: 20170126
  Receipt Date: 20170126
  Transmission Date: 20170428
  Serious: Yes (Hospitalization, Other)
  Sender: FDA-Public Use
  Company Number: BR-UCBSA-2017002693

PATIENT
  Age: 1 Year
  Sex: Male
  Weight: 12 kg

DRUGS (4)
  1. OXCARBAZEPINE. [Concomitant]
     Active Substance: OXCARBAZEPINE
     Indication: PRODUCT USED FOR UNKNOWN INDICATION
     Dosage: UNK
     Dates: start: 2016
  2. KEPPRA [Suspect]
     Active Substance: LEVETIRACETAM
     Indication: EPILEPSY
     Dosage: 400 MG, 2X/DAY (BID)
     Route: 048
     Dates: start: 201610, end: 2016
  3. VIGABATRIN [Concomitant]
     Active Substance: VIGABATRIN
     Indication: INFANTILE SPASMS
     Dosage: 1250 MG, ONCE DAILY (QD)
     Route: 048
     Dates: start: 201611
  4. KEPPRA [Suspect]
     Active Substance: LEVETIRACETAM
     Dosage: INCREASED DOSE
     Dates: start: 2016

REACTIONS (4)
  - Duodenal ulcer haemorrhage [Unknown]
  - Generalised tonic-clonic seizure [Unknown]
  - Partial seizures [Unknown]
  - Infantile spasms [Recovered/Resolved]

NARRATIVE: CASE EVENT DATE: 2016
